FAERS Safety Report 17577247 (Version 1)
Quarter: 2020Q1

REPORT INFORMATION
  Report Type: Spontaneous
  Country: US (occurrence: US)
  Receive Date: 20200324
  Receipt Date: 20200324
  Transmission Date: 20200409
  Serious: No
  Sender: FDA-Public Use
  Company Number: None

PATIENT
  Age: 75 Year
  Sex: Female
  Weight: 75.3 kg

DRUGS (1)
  1. CAPECITABINE. [Suspect]
     Active Substance: CAPECITABINE
     Dosage: ?          OTHER FREQUENCY:BID M-F;?
     Route: 048

REACTIONS (4)
  - Rash [None]
  - Hypersensitivity [None]
  - Therapy cessation [None]
  - Urticaria [None]
